FAERS Safety Report 5125134-8 (Version None)
Quarter: 2006Q4

REPORT INFORMATION
  Report Type: 
  Country: None (occurrence: None)
  Receive Date: 20061006
  Receipt Date: 20060926
  Transmission Date: 20070319
  Serious: Yes (Hospitalization)
  Sender: FDA-Public Use
  Company Number: 2006-02538

PATIENT
  Age: 65 Year
  Sex: Female
  Weight: 84 kg

DRUGS (5)
  1. VELCADE [Suspect]
     Indication: MULTIPLE MYELOMA
     Dosage: 3.50 MG, INTRAVENOUS
     Route: 042
     Dates: start: 20060901
  2. DEXAMETHASONE TABLET [Concomitant]
  3. ALPHA LIPOIC ACID (THIOCTIC ACID) [Concomitant]
  4. NEUROMULTIVIT (PYRIDOXINE HYDROCHLORIDE, CYANOCOBALAMIN, THIAMINE HYDR [Concomitant]
  5. NEUROMIN (PYRIDOXINE HYDROCHLORIDE, THIAMINE HYDROCHLORIDE, CYANOCOBAL [Concomitant]

REACTIONS (5)
  - ABASIA [None]
  - AORTIC VALVE INCOMPETENCE [None]
  - AORTIC VALVE SCLEROSIS [None]
  - MUSCULAR WEAKNESS [None]
  - POLYNEUROPATHY [None]
